FAERS Safety Report 7103266-2 (Version None)
Quarter: 2010Q4

REPORT INFORMATION
  Report Type: 
  Country: None (occurrence: None)
  Receive Date: 20101108
  Receipt Date: 20101022
  Transmission Date: 20110411
  Serious: Yes (Death, Hospitalization)
  Sender: FDA-Public Use
  Company Number: 2010004563

PATIENT
  Sex: Male
  Weight: 70.45 kg

DRUGS (3)
  1. ERLOTINIB (TABLET) [Suspect]
     Indication: PANCREATIC CARCINOMA
     Dosage: 100 MG QD, ORAL
     Route: 048
     Dates: start: 20100902, end: 20101020
  2. GEMCITABINE [Suspect]
     Indication: PANCREATIC CARCINOMA
     Dosage: (1000 MG/M2, DAYS 1, 8, AND 15) INTRAVENOUS
     Route: 042
     Dates: start: 20100902, end: 20101015
  3. IMC-A12 (INJECTION FOR INFUSION) [Suspect]
     Indication: PANCREATIC CARCINOMA
     Dosage: 6 MG/KG, DAYS 1, 8, 15 AND 22, INTRAVENOUS
     Route: 042
     Dates: start: 20100902, end: 20101015

REACTIONS (16)
  - ACIDOSIS [None]
  - BLOOD PRESSURE DECREASED [None]
  - CHEST DISCOMFORT [None]
  - COUGH [None]
  - DYSPNOEA [None]
  - ELECTROMECHANICAL DISSOCIATION [None]
  - HYPERGLYCAEMIA [None]
  - HYPONATRAEMIA [None]
  - LEFT VENTRICULAR DYSFUNCTION [None]
  - LOBAR PNEUMONIA [None]
  - OXYGEN SATURATION DECREASED [None]
  - PULMONARY EMBOLISM [None]
  - PYREXIA [None]
  - SINUS TACHYCARDIA [None]
  - THROMBOSIS [None]
  - VENTRICULAR FIBRILLATION [None]
